FAERS Safety Report 19349187 (Version 1)
Quarter: 2021Q2

REPORT INFORMATION
  Report Type: Spontaneous
  Country: US (occurrence: US)
  Receive Date: 20210529
  Receipt Date: 20210529
  Transmission Date: 20210717
  Serious: No
  Sender: FDA-Public Use
  Company Number: None

PATIENT
  Age: 63 Year
  Sex: Female

DRUGS (1)
  1. CAPECITABINE  TAB 500MG [Suspect]
     Active Substance: CAPECITABINE
     Route: 048
     Dates: start: 202102

REACTIONS (4)
  - Skin hyperpigmentation [None]
  - Skin exfoliation [None]
  - Oral pain [None]
  - Nail discolouration [None]

NARRATIVE: CASE EVENT DATE: 20210501
